FAERS Safety Report 7721881-X (Version None)
Quarter: 2011Q3

REPORT INFORMATION
  Report Type: 
  Country: None (occurrence: None)
  Receive Date: 20110831
  Receipt Date: 20110824
  Transmission Date: 20111222
  Serious: Yes (Hospitalization, Other)
  Sender: FDA-Public Use
  Company Number: US-BAYER-201037360NA

PATIENT
  Age: 39 Year
  Sex: Female
  Weight: 65.76 kg

DRUGS (11)
  1. NITRO-BID [Concomitant]
  2. AMOXICILLIN [Concomitant]
     Dosage: 500 MG, UNK
     Dates: start: 20061011
  3. DIPYRIDAMOLE [Concomitant]
  4. YAZ [Suspect]
     Indication: CONTRACEPTION
     Dosage: UNK
     Route: 048
     Dates: start: 20060901, end: 20061101
  5. TRACLEER [Concomitant]
  6. YASMIN [Suspect]
     Indication: CONTRACEPTION
     Dosage: UNK
     Route: 048
     Dates: start: 20030801, end: 20031101
  7. VALTREX [Concomitant]
     Dosage: 500 MG, UNK
     Dates: start: 20061002
  8. HYDROCODONE BITARTRATE [Concomitant]
  9. NIFEDIPINE [Concomitant]
     Dosage: UNK
     Dates: start: 20060101
  10. ASPIRIN [Concomitant]
  11. NITROGLYCERIN [Concomitant]

REACTIONS (5)
  - SUBCLAVIAN ARTERY STENOSIS [None]
  - CONGENITAL ARTERIAL MALFORMATION [None]
  - SUBCLAVIAN ARTERY THROMBOSIS [None]
  - PAIN [None]
  - ARTERIAL THROMBOSIS [None]
